FAERS Safety Report 5090543-2 (Version None)
Quarter: 2006Q3

REPORT INFORMATION
  Report Type: 
  Country: None (occurrence: None)
  Receive Date: 20060828
  Receipt Date: 20060519
  Transmission Date: 20061208
  Serious: No
  Sender: FDA-Public Use
  Company Number: US-GLAXOSMITHKLINE-A0607521A

PATIENT
  Age: 46 Year
  Sex: Female
  Weight: 79.4 kg

DRUGS (1)
  1. WELLBUTRIN XL [Suspect]
     Indication: DEPRESSION
     Dosage: 300MG PER DAY
     Route: 048
     Dates: end: 20060401

REACTIONS (3)
  - DYSARTHRIA [None]
  - MEDICATION RESIDUE [None]
  - SPEECH DISORDER [None]
